FAERS Safety Report 5412707-8 (Version None)
Quarter: 2007Q3

REPORT INFORMATION
  Report Type: 
  Country: None (occurrence: None)
  Receive Date: 20070809
  Receipt Date: 20070731
  Transmission Date: 20080115
  Serious: Yes (Hospitalization)
  Sender: FDA-Public Use
  Company Number: 2007-162145-NL

PATIENT
  Age: 29 Year
  Sex: Female

DRUGS (2)
  1. ETONOGESTREL [Suspect]
     Dosage: DF SUBCUTANEOUS
     Route: 058
  2. ISOTRETINOIN [Concomitant]

REACTIONS (3)
  - BILIARY COLIC [None]
  - HEPATITIS [None]
  - MYALGIA [None]
